FAERS Safety Report 7552039-5 (Version None)
Quarter: 2011Q2

REPORT INFORMATION
  Report Type: 
  Country: None (occurrence: None)
  Receive Date: 20110616
  Receipt Date: 20110531
  Transmission Date: 20111010
  Serious: No
  Sender: FDA-Public Use
  Company Number: US-B.I. PHARMACEUTICALS,INC./RIDGEFIELD-2011-BP-02255BP

PATIENT
  Age: 72 Year
  Sex: Male

DRUGS (10)
  1. PRADAXA [Suspect]
     Indication: ATRIAL FIBRILLATION
     Dosage: 300 MG
     Route: 048
     Dates: start: 20110101, end: 20110209
  2. PROPAFENONE HCL [Suspect]
     Dosage: 675 MG
     Route: 048
     Dates: start: 20110113
  3. OMEPRAZOLE [Concomitant]
     Dosage: 20 MG
     Dates: start: 20090101
  4. PRADAXA [Suspect]
     Indication: CEREBROVASCULAR ACCIDENT PROPHYLAXIS
  5. LISINOPRIL [Concomitant]
     Dosage: 40 MG
     Dates: start: 20090101
  6. PROPAFENONE HCL [Suspect]
     Indication: ATRIAL FIBRILLATION
     Dosage: 450 MG
     Route: 048
     Dates: start: 20090101
  7. LIPITOR [Concomitant]
     Dates: start: 20080101
  8. PRADAXA [Suspect]
     Indication: HEART RATE IRREGULAR
  9. DIGOXIN [Suspect]
     Indication: ATRIAL FIBRILLATION
     Dosage: 0.25 MG
     Route: 048
  10. ASPIRIN [Concomitant]
     Dosage: 81 MG

REACTIONS (2)
  - PALPITATIONS [None]
  - ATRIAL FLUTTER [None]
